FAERS Safety Report 16875019 (Version 4)
Quarter: 2020Q1

REPORT INFORMATION
  Report Type: Spontaneous
  Country: US (occurrence: US)
  Receive Date: 20191001
  Receipt Date: 20200117
  Transmission Date: 20200409
  Serious: Yes (Hospitalization)
  Sender: FDA-Public Use
  Company Number: US-ACTELION-A-NJ2019-196287

PATIENT
  Age: 63 Year
  Sex: Female

DRUGS (1)
  1. OPSUMIT [Suspect]
     Active Substance: MACITENTAN
     Indication: PULMONARY ARTERIAL HYPERTENSION
     Dosage: 10 MG, QD
     Route: 048
     Dates: start: 20181011

REACTIONS (6)
  - Pneumonia [Recovering/Resolving]
  - Cerebral haemorrhage [Recovering/Resolving]
  - Aneurysm repair [Unknown]
  - Nasopharyngitis [Recovering/Resolving]
  - Coma [Recovering/Resolving]
  - Life support [Recovering/Resolving]

NARRATIVE: CASE EVENT DATE: 20190909
